FAERS Safety Report 7734503-9 (Version None)
Quarter: 2011Q3

REPORT INFORMATION
  Report Type: 
  Country: None (occurrence: None)
  Receive Date: 20110907
  Receipt Date: 20110826
  Transmission Date: 20111222
  Serious: Yes (Death, Hospitalization)
  Sender: FDA-Public Use
  Company Number: US-GLAXOSMITHKLINE-A0898428A

PATIENT
  Age: 51 Year
  Sex: Male

DRUGS (6)
  1. AVANDIA [Suspect]
     Indication: DIABETES MELLITUS
     Dosage: 4MG PER DAY
     Route: 048
     Dates: start: 20000524, end: 20010404
  2. MINOXIDIL [Concomitant]
  3. INSULIN [Concomitant]
  4. VASOTEC [Concomitant]
  5. ZOLOFT [Concomitant]
  6. AXID [Concomitant]

REACTIONS (5)
  - CEREBROVASCULAR ACCIDENT [None]
  - PULMONARY EMBOLISM [None]
  - FEMUR FRACTURE [None]
  - CEREBRAL INFARCTION [None]
  - CARDIAC FAILURE CONGESTIVE [None]
